FAERS Safety Report 18564713 (Version 1)
Quarter: 2020Q4

REPORT INFORMATION
  Report Type: Spontaneous
  Country: US (occurrence: US)
  Receive Date: 20201130
  Receipt Date: 20201130
  Transmission Date: 20210114
  Serious: No
  Sender: FDA-Public Use
  Company Number: None

PATIENT
  Age: 27 Year
  Sex: Female
  Weight: 58.5 kg

DRUGS (4)
  1. AZITHROMYCIN (OUTER) TAB AURO [Suspect]
     Active Substance: AZITHROMYCIN
     Indication: PHARYNGITIS
     Dosage: ?          QUANTITY:6 CAPSULE(S);?
     Route: 048
     Dates: start: 20201129, end: 20201130
  2. BIRTH CONTROL [Concomitant]
     Active Substance: UNSPECIFIED INGREDIENT
  3. ALBUTEROL. [Concomitant]
     Active Substance: ALBUTEROL
  4. SERTRALINE [Concomitant]
     Active Substance: SERTRALINE HYDROCHLORIDE

REACTIONS (2)
  - Diarrhoea [None]
  - Abdominal pain [None]

NARRATIVE: CASE EVENT DATE: 20201130
